FAERS Safety Report 23583519 (Version 2)
Quarter: 2024Q4

REPORT INFORMATION
  Report Type: Report from Study
  Country: DE (occurrence: DE)
  Receive Date: 20240301
  Receipt Date: 20241203
  Transmission Date: 20250115
  Serious: Yes (Hospitalization, Other)
  Sender: ABBVIE
  Company Number: DE-ABBVIE-5647525

PATIENT
  Age: 60 Year
  Sex: Male
  Weight: 114 kg

DRUGS (1)
  1. SKYRIZI [Suspect]
     Active Substance: RISANKIZUMAB-RZAA
     Indication: Psoriasis
     Route: 058
     Dates: start: 20210310

REACTIONS (3)
  - Fibroma [Recovered/Resolved]
  - Genital lesion [Recovered/Resolved]
  - Shoulder fracture [Recovered/Resolved]

NARRATIVE: CASE EVENT DATE: 20220201
